FAERS Safety Report 10713538 (Version 2)
Quarter: 2015Q1

REPORT INFORMATION
  Report Type: Spontaneous
  Country: JP (occurrence: JP)
  Receive Date: 20150115
  Receipt Date: 20150204
  Transmission Date: 20150721
  Serious: Yes (Other)
  Sender: FDA-Public Use
  Company Number: JP-MYLANLABS-2015M1000239

PATIENT

DRUGS (6)
  1. CARBOPLATIN. [Suspect]
     Active Substance: CARBOPLATIN
     Indication: LUNG ADENOCARCINOMA METASTATIC
     Dosage: 1 COURSE
     Route: 041
  2. AVASTIN [Suspect]
     Active Substance: BEVACIZUMAB
     Indication: METASTASES TO BONE
  3. CARBOPLATIN. [Suspect]
     Active Substance: CARBOPLATIN
     Indication: METASTASES TO BONE
  4. ALIMTA [Suspect]
     Active Substance: PEMETREXED DISODIUM
     Indication: METASTASES TO BONE
  5. AVASTIN [Suspect]
     Active Substance: BEVACIZUMAB
     Indication: LUNG ADENOCARCINOMA METASTATIC
     Dosage: 1 COURSE
     Route: 041
  6. ALIMTA [Suspect]
     Active Substance: PEMETREXED DISODIUM
     Indication: LUNG ADENOCARCINOMA METASTATIC
     Dosage: 1 COURSE
     Route: 041

REACTIONS (1)
  - Gastric ulcer haemorrhage [Unknown]
